FAERS Safety Report 8476622-8 (Version None)
Quarter: 2012Q2

REPORT INFORMATION
  Report Type: 
  Country: None (occurrence: None)
  Receive Date: 20120628
  Receipt Date: 20120622
  Transmission Date: 20120825
  Serious: Yes (Hospitalization, Other)
  Sender: FDA-Public Use
  Company Number: US-PFIZER INC-2011298556

PATIENT
  Sex: Male

DRUGS (2)
  1. XALKORI [Suspect]
     Indication: NON-SMALL CELL LUNG CANCER
     Dosage: 250 MG, 2X/DAY
     Route: 048
     Dates: start: 20111031, end: 20120101
  2. XALKORI [Suspect]
     Dosage: 250 MG DAILY
     Route: 048
     Dates: start: 20120501

REACTIONS (20)
  - ABSCESS [None]
  - EMBOLISM [None]
  - INTERNATIONAL NORMALISED RATIO DECREASED [None]
  - THROMBOSIS [None]
  - FEELING ABNORMAL [None]
  - PNEUMONITIS [None]
  - BACK PAIN [None]
  - CHEST PAIN [None]
  - DYSGEUSIA [None]
  - VISUAL IMPAIRMENT [None]
  - MOBILITY DECREASED [None]
  - STOMATITIS [None]
  - OEDEMA PERIPHERAL [None]
  - DIZZINESS [None]
  - OEDEMA [None]
  - NON-SMALL CELL LUNG CANCER [None]
  - PULMONARY EMBOLISM [None]
  - DIVERTICULAR PERFORATION [None]
  - JOINT SWELLING [None]
  - DISEASE PROGRESSION [None]
